FAERS Safety Report 23615667 (Version 1)
Quarter: 2024Q1

REPORT INFORMATION
  Report Type: Spontaneous
  Country: CA (occurrence: None)
  Receive Date: 20240311
  Receipt Date: 20240311
  Transmission Date: 20240410
  Serious: Yes (Other)
  Sender: FDA-Public Use
  Company Number: CA-ROCHE-3522464

PATIENT
  Age: 45 Year
  Sex: Female

DRUGS (2)
  1. RITUXIMAB [Suspect]
     Active Substance: RITUXIMAB
     Indication: Rheumatoid arthritis
     Route: 042
  2. SULFASALAZINE [Concomitant]
     Active Substance: SULFASALAZINE
     Route: 065

REACTIONS (2)
  - Drug hypersensitivity [Unknown]
  - Pulmonary toxicity [Unknown]
